FAERS Safety Report 21037704 (Version 2)
Quarter: 2022Q4

REPORT INFORMATION
  Report Type: Spontaneous
  Country: US (occurrence: US)
  Receive Date: 20220704
  Receipt Date: 20221013
  Transmission Date: 20230113
  Serious: Yes (Other)
  Sender: FDA-Public Use
  Company Number: US-PADAGIS-2022PAD00233

PATIENT

DRUGS (1)
  1. IMIQUIMOD [Suspect]
     Active Substance: IMIQUIMOD
     Indication: Skin cancer
     Dosage: UNK
     Route: 061
     Dates: start: 20220926

REACTIONS (6)
  - Tumour invasion [Not Recovered/Not Resolved]
  - Tongue discomfort [Not Recovered/Not Resolved]
  - Application site hypersensitivity [Not Recovered/Not Resolved]
  - Application site swelling [Not Recovered/Not Resolved]
  - Oral discomfort [Not Recovered/Not Resolved]
  - Product use issue [Unknown]

NARRATIVE: CASE EVENT DATE: 20220101
